FAERS Safety Report 4531912-6 (Version None)
Quarter: 2004Q4

REPORT INFORMATION
  Report Type: 
  Country: None (occurrence: None)
  Receive Date: 20041216
  Receipt Date: 20041210
  Transmission Date: 20050328
  Serious: Yes (Hospitalization)
  Sender: FDA-Public Use
  Company Number: 2004UW25271

PATIENT
  Age: 61 Year
  Sex: Female
  Weight: 92.986 kg

DRUGS (5)
  1. ARIMIDEX [Suspect]
     Indication: BREAST CANCER RECURRENT
     Dosage: 1 MG PO
     Route: 048
  2. BENICAR [Concomitant]
  3. VERAPAMIL [Concomitant]
  4. SPIRONOLACTONE [Concomitant]
  5. CLONIDINE [Concomitant]

REACTIONS (1)
  - HYPERTENSIVE CRISIS [None]
